FAERS Safety Report 9677101 (Version 3)
Quarter: 2013Q4

REPORT INFORMATION
  Report Type: Spontaneous
  Country: CA (occurrence: CA)
  Receive Date: 20131108
  Receipt Date: 20131120
  Transmission Date: 20140711
  Serious: Yes (Other)
  Sender: FDA-Public Use
  Company Number: CA-JNJFOC-20131016547

PATIENT
  Age: 50 Year
  Sex: Female
  Weight: 99.79 kg

DRUGS (3)
  1. BENADRYL NIGHTIME ES ALLERGY [Suspect]
     Indication: RHINORRHOEA
     Dosage: TAKEN AT NIGHT
     Route: 048
     Dates: start: 20131029
  2. BENADRYL NIGHTIME ES ALLERGY [Suspect]
     Indication: EYE PRURITUS
     Dosage: TAKEN AT NIGHT
     Route: 048
     Dates: start: 20131029
  3. BENADRYL NIGHTIME ES ALLERGY [Suspect]
     Indication: MULTIPLE ALLERGIES
     Dosage: TAKEN AT NIGHT
     Route: 048
     Dates: start: 20131029

REACTIONS (4)
  - Mania [Recovered/Resolved]
  - Insomnia [Recovered/Resolved]
  - Logorrhoea [Recovered/Resolved]
  - Formication [Recovered/Resolved]
